FAERS Safety Report 5649416-6 (Version None)
Quarter: 2008Q1

REPORT INFORMATION
  Report Type: 
  Country: None (occurrence: None)
  Receive Date: 20080304
  Receipt Date: 20080220
  Transmission Date: 20080703
  Serious: Yes (Hospitalization)
  Sender: FDA-Public Use
  Company Number: DE-BAYER-200611804BVD

PATIENT
  Age: 71 Year
  Sex: Female

DRUGS (9)
  1. PLACEBO TO SORAFENIB [Suspect]
     Indication: NON-SMALL CELL LUNG CANCER
     Route: 048
     Dates: start: 20061102
  2. PLACEBO TO SORAFENIB [Suspect]
     Route: 048
     Dates: start: 20061123
  3. PLACEBO TO SORAFENIB [Suspect]
     Route: 048
     Dates: start: 20061213, end: 20061224
  4. CARBOPLATIN [Suspect]
     Indication: NON-SMALL CELL LUNG CANCER
     Route: 042
     Dates: start: 20061102
  5. CARBOPLATIN [Suspect]
     Route: 042
     Dates: start: 20061123
  6. CARBOPLATIN [Suspect]
     Route: 042
     Dates: start: 20061213
  7. PACLITAXEL [Suspect]
     Indication: NON-SMALL CELL LUNG CANCER
     Route: 042
     Dates: start: 20061123
  8. PACLITAXEL [Suspect]
     Route: 042
     Dates: start: 20061102
  9. PACLITAXEL [Suspect]
     Route: 042
     Dates: start: 20061213

REACTIONS (3)
  - EPISTAXIS [None]
  - PANCYTOPENIA [None]
  - PYREXIA [None]
